FAERS Safety Report 7251083-5 (Version None)
Quarter: 2011Q1

REPORT INFORMATION
  Report Type: 
  Country: None (occurrence: None)
  Receive Date: 20110128
  Receipt Date: 20110121
  Transmission Date: 20110831
  Serious: Yes (Other)
  Sender: FDA-Public Use
  Company Number: US-MERCK-1008USA02716

PATIENT
  Age: 39 Year
  Sex: Female

DRUGS (3)
  1. LOPINAVIR AND RITONAVIR [Suspect]
     Route: 048
     Dates: start: 20100809
  2. ISENTRESS [Suspect]
     Route: 048
  3. TRUVADA [Suspect]
     Route: 048

REACTIONS (2)
  - ABORTION SPONTANEOUS [None]
  - DRUG EXPOSURE DURING PREGNANCY [None]
